FAERS Safety Report 4837625-5 (Version None)
Quarter: 2005Q4

REPORT INFORMATION
  Report Type: 
  Country: None (occurrence: None)
  Receive Date: 20051128
  Receipt Date: 20051122
  Transmission Date: 20060501
  Serious: Yes (Life-Threatening)
  Sender: FDA-Public Use
  Company Number: 2005CG01940

PATIENT
  Age: 48 Year
  Sex: Male
  Weight: 85 kg

DRUGS (1)
  1. DIPRIVAN [Suspect]
     Route: 042
     Dates: start: 20051021, end: 20051021

REACTIONS (2)
  - CARDIOVASCULAR DISORDER [None]
  - SHOCK [None]
